FAERS Safety Report 4615506-X (Version None)
Quarter: 2005Q1

REPORT INFORMATION
  Report Type: 
  Country: None (occurrence: None)
  Receive Date: 20050317
  Receipt Date: 20050315
  Transmission Date: 20050727
  Serious: Yes (Hospitalization)
  Sender: FDA-Public Use
  Company Number: A044-002-005517

PATIENT
  Age: 56 Year
  Sex: Male

DRUGS (4)
  1. ARICEPT [Suspect]
     Indication: MEMORY IMPAIRMENT
     Dosage: 5 MG, 1 IN 1 D, ORAL
     Route: 048
     Dates: start: 20050304, end: 20050305
  2. ATENOLOL [Concomitant]
  3. CLOPIDOGREL BISULFATE [Concomitant]
  4. ATORVASTATIN CALCIUM [Concomitant]

REACTIONS (4)
  - ANOREXIA [None]
  - ASTHENIA [None]
  - HYPOTHERMIA [None]
  - VOMITING [None]
